FAERS Safety Report 5138176-3 (Version None)
Quarter: 2006Q4

REPORT INFORMATION
  Report Type: 
  Country: None (occurrence: None)
  Receive Date: 20061025
  Receipt Date: 20061025
  Transmission Date: 20070319
  Serious: Yes (Other)
  Sender: FDA-Public Use
  Company Number: None

PATIENT
  Age: 63 Year
  Sex: Male
  Weight: 69.9 kg

DRUGS (11)
  1. DOXAZOSIN MESYLATE [Suspect]
  2. FUROSEMIDE [Concomitant]
  3. ALBUTEROL / IPRATROP [Concomitant]
  4. EZETIMIBE [Concomitant]
  5. TAMSULOSIN HCL [Concomitant]
  6. LISINOPRIL [Concomitant]
  7. ATORVASTATIN CALCIUM [Concomitant]
  8. MOMETASONE FUROATE [Concomitant]
  9. METOPROLOL TARTRATE [Concomitant]
  10. CLOPIDOGREL BISULFATE [Concomitant]
  11. OMEPRAZOLE [Concomitant]

REACTIONS (1)
  - HYPOTENSION [None]
